FAERS Safety Report 17743882 (Version 1)
Quarter: 2020Q2

REPORT INFORMATION
  Report Type: Spontaneous
  Country: CN (occurrence: CN)
  Receive Date: 20200505
  Receipt Date: 20200505
  Transmission Date: 20200714
  Serious: Yes (Other)
  Sender: FDA-Public Use
  Company Number: CN-ROCHE-2592455

PATIENT
  Age: 60 Year
  Sex: Female

DRUGS (6)
  1. PEMETREXED DISODIUM [Concomitant]
     Active Substance: PEMETREXED DISODIUM
     Indication: LUNG ADENOCARCINOMA
     Route: 065
     Dates: start: 20180130, end: 20180305
  2. ANLOTINIB HYDROCHLORIDE [Concomitant]
     Indication: LUNG ADENOCARCINOMA
     Route: 048
     Dates: start: 20180827, end: 20190224
  3. NIVOLUMAB [Concomitant]
     Active Substance: NIVOLUMAB
     Indication: LUNG ADENOCARCINOMA
     Route: 065
     Dates: start: 201909, end: 201912
  4. AVASTIN [Suspect]
     Active Substance: BEVACIZUMAB
     Indication: LUNG ADENOCARCINOMA
     Route: 065
     Dates: start: 20180326, end: 20180625
  5. PACLITAXEL. [Concomitant]
     Active Substance: PACLITAXEL
     Indication: LUNG ADENOCARCINOMA
     Route: 065
     Dates: start: 20180326, end: 20180625
  6. CARBOPLATIN. [Concomitant]
     Active Substance: CARBOPLATIN
     Indication: LUNG ADENOCARCINOMA
     Route: 065
     Dates: start: 20180130, end: 20180625

REACTIONS (1)
  - Bone marrow failure [Unknown]
